FAERS Safety Report 7943800-3 (Version None)
Quarter: 2011Q4

REPORT INFORMATION
  Report Type: 
  Country: None (occurrence: None)
  Receive Date: 20111128
  Receipt Date: 20111117
  Transmission Date: 20120403
  Serious: No
  Sender: FDA-Public Use
  Company Number: CA-ROCHE-1014601

PATIENT
  Sex: Female

DRUGS (2)
  1. ACCUTANE [Suspect]
     Indication: ACNE
     Route: 048
     Dates: start: 20110101, end: 20110101
  2. ACCUTANE [Suspect]
     Route: 048
     Dates: start: 20110801, end: 20110920

REACTIONS (1)
  - PREGNANCY [None]
